FAERS Safety Report 5891928-4 (Version None)
Quarter: 2008Q3

REPORT INFORMATION
  Report Type: 
  Country: None (occurrence: None)
  Receive Date: 20080922
  Receipt Date: 20080916
  Transmission Date: 20090109
  Serious: Yes (Disabling, Other)
  Sender: FDA-Public Use
  Company Number: AU-ASTRAZENECA-2008AP06381

PATIENT
  Age: 59 Year
  Sex: Female

DRUGS (4)
  1. SEROQUEL [Suspect]
     Route: 048
     Dates: end: 20080803
  2. SOLIAN [Concomitant]
  3. AVANZA [Concomitant]
  4. CORDILOX SR [Concomitant]

REACTIONS (2)
  - FALL [None]
  - TARDIVE DYSKINESIA [None]
